FAERS Safety Report 9379376 (Version 1)
Quarter: 2013Q2

REPORT INFORMATION
  Report Type: Spontaneous
  Country: JP (occurrence: None)
  Receive Date: 20130408
  Receipt Date: 20130408
  Transmission Date: 20140414
  Serious: Yes (Death, Life-Threatening)
  Sender: FDA-Public Use
  Company Number: JP-2013-0216

PATIENT
  Age: 68 Year
  Sex: Male
  Weight: 51 kg

DRUGS (9)
  1. NAVELBINE (VINORELBINE TARTRATE) INFUSION [Suspect]
     Indication: LUNG NEOPLASM MALIGNANT
     Route: 042
     Dates: start: 20080718, end: 20080908
  2. LOXONIN [Concomitant]
  3. MUCOSTA (REBAMIPIDE) [Concomitant]
  4. PURSENNIDE (SENNA ALEXANDRINA LEAF) [Concomitant]
  5. MAGMITT (MAGNESIUM OXIDE) [Concomitant]
  6. OXYCONTIN (OXYCODONE HYDROCHLORIDE) [Concomitant]
  7. CELECOX (CELECOXIB) [Concomitant]
  8. CRAVIT (LEVOFLOXACIN) [Concomitant]
  9. GENINAX (GARENOXACIN MESILATE) [Concomitant]

REACTIONS (3)
  - Interstitial lung disease [None]
  - Disease progression [None]
  - Lung neoplasm malignant [None]
